FAERS Safety Report 6120505-5 (Version None)
Quarter: 2009Q1

REPORT INFORMATION
  Report Type: 
  Country: None (occurrence: None)
  Receive Date: 20090312
  Receipt Date: 20090302
  Transmission Date: 20090719
  Serious: Yes (Other)
  Sender: FDA-Public Use
  Company Number: GXKR2009JP02671

PATIENT
  Age: 50 Year
  Sex: Male

DRUGS (1)
  1. PREDNISOLONE [Suspect]
     Indication: CARDIAC SARCOIDOSIS
     Dosage: 30 MG/DAY, 20 MG/DAY;

REACTIONS (4)
  - DYSPNOEA AT REST [None]
  - EJECTION FRACTION DECREASED [None]
  - HIGH FREQUENCY ABLATION [None]
  - VENTRICULAR TACHYCARDIA [None]
